FAERS Safety Report 6501692-3 (Version None)
Quarter: 2009Q4

REPORT INFORMATION
  Report Type: 
  Country: None (occurrence: None)
  Receive Date: 20091216
  Receipt Date: 20090626
  Transmission Date: 20100525
  Serious: No
  Sender: FDA-Public Use
  Company Number: US-AMGEN-KDL350929

PATIENT
  Sex: Female
  Weight: 50.8 kg

DRUGS (10)
  1. ARANESP [Suspect]
     Indication: RENAL FAILURE CHRONIC
     Dates: start: 20090316, end: 20090504
  2. CEFUROXIME [Concomitant]
  3. CENTRUM SILVER [Concomitant]
  4. CLONIDINE [Concomitant]
  5. FUROSEMIDE [Concomitant]
  6. IRON [Concomitant]
  7. ISOSORBIDE [Concomitant]
  8. LEVOTHYROXINE SODIUM [Concomitant]
  9. PHOSLO [Concomitant]
  10. TOPROL-XL [Concomitant]

REACTIONS (8)
  - EXFOLIATIVE RASH [None]
  - INJECTION SITE DISCOLOURATION [None]
  - INJECTION SITE RASH [None]
  - PIGMENTATION DISORDER [None]
  - RASH MACULAR [None]
  - RASH PRURITIC [None]
  - SKIN DEPIGMENTATION [None]
  - SKIN HYPERPIGMENTATION [None]
